FAERS Safety Report 23669099 (Version 1)
Quarter: 2024Q1

REPORT INFORMATION
  Report Type: Spontaneous
  Country: DE (occurrence: None)
  Receive Date: 20240325
  Receipt Date: 20240325
  Transmission Date: 20240409
  Serious: Yes (Other)
  Sender: FDA-Public Use
  Company Number: 2024A071580

PATIENT
  Age: 21587 Day
  Sex: Female
  Weight: 53.3 kg

DRUGS (2)
  1. ACLIDINIUM BROMIDE\FORMOTEROL FUMARATE [Suspect]
     Active Substance: ACLIDINIUM BROMIDE\FORMOTEROL FUMARATE
     Indication: Chronic obstructive pulmonary disease
     Dosage: 352 MICROGRAM, DAILY DOSAGE 1-0-1
     Dates: start: 20240215, end: 20240217
  2. ACLIDINIUM BROMIDE\FORMOTEROL FUMARATE [Suspect]
     Active Substance: ACLIDINIUM BROMIDE\FORMOTEROL FUMARATE
     Indication: Emphysema
     Dosage: 352 MICROGRAM, DAILY DOSAGE 1-0-1
     Dates: start: 20240215, end: 20240217

REACTIONS (3)
  - Cardiovascular disorder [Recovered/Resolved]
  - Palpitations [Recovered/Resolved]
  - Dizziness [Recovered/Resolved]

NARRATIVE: CASE EVENT DATE: 20240215
